FAERS Safety Report 13612161 (Version 4)
Quarter: 2017Q3

REPORT INFORMATION
  Report Type: Spontaneous
  Country: KR (occurrence: KR)
  Receive Date: 20170605
  Receipt Date: 20170802
  Transmission Date: 20171127
  Serious: Yes (Hospitalization, Other)
  Sender: FDA-Public Use
  Company Number: KR-009507513-1706KOR000321

PATIENT
  Age: 62 Year
  Sex: Male
  Weight: 53 kg

DRUGS (36)
  1. CALMTOP [Concomitant]
     Dosage: 100 MG, ONCE, ROUTE: INF, CYCLE 3
     Dates: start: 20170331, end: 20170331
  2. CALMTOP [Concomitant]
     Dosage: 100 MG, ONCE, ROUTE: INF, CYCLE 3
     Dates: start: 20170407, end: 20170407
  3. DEXAMETHASONE SODIUM PHOSPHATE. [Concomitant]
     Active Substance: DEXAMETHASONE SODIUM PHOSPHATE
     Indication: VOMITING
     Dosage: 20 MG, ONCE
     Route: 042
     Dates: start: 20170203, end: 20170203
  4. DEXAMETHASONE SODIUM PHOSPHATE. [Concomitant]
     Active Substance: DEXAMETHASONE SODIUM PHOSPHATE
     Dosage: 20 MG, ONCE
     Route: 042
     Dates: start: 20170331, end: 20170331
  5. PRIVITUSS [Concomitant]
     Indication: COUGH
     Dosage: 8 ML, TID
     Route: 048
     Dates: start: 20161101
  6. EMEND (FOSAPREPITANT DIMEGLUMINE) [Suspect]
     Active Substance: FOSAPREPITANT DIMEGLUMINE
     Dosage: 150 MG, ONCE
     Route: 042
     Dates: start: 20170331, end: 20170331
  7. EMEND (FOSAPREPITANT DIMEGLUMINE) [Suspect]
     Active Substance: FOSAPREPITANT DIMEGLUMINE
     Dosage: 150 MG, ONCE
     Route: 042
     Dates: start: 20170425, end: 20170425
  8. CALMTOP [Concomitant]
     Dosage: 100 MG, ONCE, ROUTE: INF, CYCLE 4
     Dates: start: 20170425, end: 20170425
  9. CISPLATIN. [Concomitant]
     Active Substance: CISPLATIN
     Dosage: 75 MG, ONCE, ROUTE: INF, CYCLE 2
     Dates: start: 20170228, end: 20170228
  10. CISPLATIN. [Concomitant]
     Active Substance: CISPLATIN
     Dosage: 75 MG, ONCE, ROUTE: INF, CYCLE 3
     Dates: start: 20170331, end: 20170331
  11. CISPLATIN. [Concomitant]
     Active Substance: CISPLATIN
     Dosage: 75 MG, ONCE, ROUTE: INF, CYCLE 4
     Dates: start: 20170425, end: 20170425
  12. DEXAMETHASONE. [Concomitant]
     Active Substance: DEXAMETHASONE
     Indication: VOMITING
     Dosage: 3 MG, BID
     Route: 048
     Dates: start: 20170205, end: 20170207
  13. GASTER [Concomitant]
     Active Substance: FAMOTIDINE
     Indication: GASTRITIS
     Dosage: 20 MG, BID
     Route: 048
     Dates: start: 20160418
  14. EMEND (FOSAPREPITANT DIMEGLUMINE) [Suspect]
     Active Substance: FOSAPREPITANT DIMEGLUMINE
     Dosage: 150 MG, ONCE
     Route: 042
     Dates: start: 20170228, end: 20170228
  15. DEXAMETHASONE SODIUM PHOSPHATE. [Concomitant]
     Active Substance: DEXAMETHASONE SODIUM PHOSPHATE
     Dosage: 20 MG, ONCE
     Route: 042
     Dates: start: 20170228, end: 20170228
  16. VAHELVA RESPIMAT [Concomitant]
     Indication: CHRONIC OBSTRUCTIVE PULMONARY DISEASE
     Dosage: 2.5/2.5 MICROGRAM, BID
     Route: 055
     Dates: start: 20161213
  17. SURFOLASE [Concomitant]
     Indication: CHRONIC OBSTRUCTIVE PULMONARY DISEASE
     Dosage: 100 MG, BID
     Route: 048
     Dates: start: 20160418
  18. EMEND (FOSAPREPITANT DIMEGLUMINE) [Suspect]
     Active Substance: FOSAPREPITANT DIMEGLUMINE
     Indication: PROPHYLAXIS OF NAUSEA AND VOMITING
     Dosage: 150 MG, ONCE
     Route: 042
     Dates: start: 20170203, end: 20170203
  19. CISPLATIN. [Concomitant]
     Active Substance: CISPLATIN
     Indication: NON-SMALL CELL LUNG CANCER
     Dosage: 75 MG, ONCE, ROUTE: INF, CYCLE 1
     Dates: start: 20170203, end: 20170203
  20. DEXAMETHASONE SODIUM PHOSPHATE. [Concomitant]
     Active Substance: DEXAMETHASONE SODIUM PHOSPHATE
     Dosage: 20 MG, ONCE
     Route: 042
     Dates: start: 20170425, end: 20170425
  21. ZOFRAN [Concomitant]
     Active Substance: ONDANSETRON HYDROCHLORIDE
     Dosage: 8 MG, ONCE, ROUTE: INF
     Dates: start: 20170331, end: 20170331
  22. ZOFRAN [Concomitant]
     Active Substance: ONDANSETRON HYDROCHLORIDE
     Dosage: 8 MG, ONCE, ROUTE: INF
     Dates: start: 20170425, end: 20170425
  23. CALMTOP [Concomitant]
     Dosage: 100 MG, ONCE, ROUTE: INF, CYCLE 2
     Dates: start: 20170312, end: 20170312
  24. DEXAMETHASONE. [Concomitant]
     Active Substance: DEXAMETHASONE
     Dosage: 3 MG, BID
     Route: 048
     Dates: start: 20170401, end: 20170404
  25. CALMTOP [Concomitant]
     Dosage: 100 MG, ONCE, ROUTE: INF, CYCLE 1
     Dates: start: 20170212, end: 20170212
  26. ZOFRAN [Concomitant]
     Active Substance: ONDANSETRON HYDROCHLORIDE
     Indication: VOMITING
     Dosage: 8 MG, ONCE, ROUTE: INF
     Dates: start: 20170203, end: 20170203
  27. CALMTOP [Concomitant]
     Indication: NON-SMALL CELL LUNG CANCER
     Dosage: 100 MG, ONCE, ROUTE: INF, CYCLE 1
     Dates: start: 20170203, end: 20170203
  28. CALMTOP [Concomitant]
     Dosage: 100 MG, ONCE, ROUTE: INF, CYCLE 2
     Dates: start: 20170228, end: 20170228
  29. DEXAMETHASONE. [Concomitant]
     Active Substance: DEXAMETHASONE
     Dosage: 3 MG, BID
     Route: 048
     Dates: start: 20170301, end: 20170304
  30. GANAKHAN [Concomitant]
     Indication: DYSPEPSIA
     Dosage: 50 MG, TID
     Route: 048
     Dates: start: 20160418
  31. DEXAMETHASONE. [Concomitant]
     Active Substance: DEXAMETHASONE
     Dosage: 3 MG, BID
     Route: 048
     Dates: start: 20170426, end: 20170429
  32. ZOFRAN [Concomitant]
     Active Substance: ONDANSETRON HYDROCHLORIDE
     Dosage: 8 MG, ONCE, ROUTE: INF
     Dates: start: 20170228, end: 20170228
  33. ASIMA [Concomitant]
     Indication: CHRONIC OBSTRUCTIVE PULMONARY DISEASE
     Dosage: 200 MG, BID
     Route: 048
     Dates: start: 20160418
  34. LYRICA [Concomitant]
     Active Substance: PREGABALIN
     Indication: NEUROPATHY PERIPHERAL
     Dosage: 150 MG, BID
     Route: 048
     Dates: start: 20160725
  35. SENSIVAL [Concomitant]
     Indication: NEUROPATHY PERIPHERAL
     Dosage: 10 MG, QD
     Route: 048
     Dates: start: 20160531
  36. ULTRACET [Concomitant]
     Active Substance: ACETAMINOPHEN\TRAMADOL HYDROCHLORIDE
     Indication: CANCER PAIN
     Dosage: 1 TABLET, BID
     Route: 048
     Dates: start: 20160531

REACTIONS (1)
  - Influenza [Recovered/Resolved]

NARRATIVE: CASE EVENT DATE: 20170203
